FAERS Safety Report 21093688 (Version 1)
Quarter: 2022Q3

REPORT INFORMATION
  Report Type: Spontaneous
  Country: US (occurrence: US)
  Receive Date: 20220718
  Receipt Date: 20220718
  Transmission Date: 20221027
  Serious: Yes (Hospitalization)
  Sender: FDA-Public Use
  Company Number: US-MYLANLABS-2022M1078059

PATIENT
  Age: 37 Year
  Sex: Male

DRUGS (2)
  1. TACROLIMUS [Suspect]
     Active Substance: TACROLIMUS
     Indication: Immunosuppressant drug therapy
     Dosage: UNK
     Route: 065
  2. AZATHIOPRINE [Suspect]
     Active Substance: AZATHIOPRINE
     Indication: Immunosuppressant drug therapy
     Dosage: UNK
     Route: 065

REACTIONS (9)
  - Arterial rupture [Unknown]
  - Tracheal deviation [Unknown]
  - Cytomegalovirus viraemia [Unknown]
  - Oesophageal candidiasis [Unknown]
  - BK virus infection [Unknown]
  - Viruria [Unknown]
  - Clostridium difficile infection [Unknown]
  - Hypertension [Unknown]
  - Haematoma [Unknown]
